FAERS Safety Report 9850067 (Version 2)
Quarter: 2016Q3

REPORT INFORMATION
  Report Type: Spontaneous
  Country: US (occurrence: US)
  Receive Date: 20131226
  Receipt Date: 20160926
  Transmission Date: 20161109
  Serious: Yes (Hospitalization)
  Sender: FDA-Public Use
  Company Number: PHEH2012US015592

PATIENT
  Age: 73 Year
  Sex: Male

DRUGS (1)
  1. AFINITOR [Suspect]
     Active Substance: EVEROLIMUS
     Indication: MALIGNANT NEOPLASM OF ISLETS OF LANGERHANS
     Dosage: 10 MG, QD
     Route: 048
     Dates: start: 20120409

REACTIONS (2)
  - Swelling [Unknown]
  - Thrombosis [Unknown]

NARRATIVE: CASE EVENT DATE: 20160916
